FAERS Safety Report 8974261 (Version 1)
Quarter: 2012Q4

REPORT INFORMATION
  Report Type: Spontaneous
  Country: US (occurrence: None)
  Receive Date: 20121217
  Receipt Date: 20121217
  Transmission Date: 20130627
  Serious: No
  Sender: FDA-Public Use
  Company Number: None

PATIENT
  Age: 72 Year
  Sex: Male

DRUGS (22)
  1. REVLIMID [Suspect]
     Indication: MULTIPLE MYELOMA
     Route: 048
     Dates: start: 201006, end: 201102
  2. REVLIMID [Suspect]
     Indication: MULTIPLE MYELOMA
     Dates: start: 201203, end: 201209
  3. CITALOPRAM [Concomitant]
  4. TESTOSTERONE [Concomitant]
  5. VARDENAFIL [Concomitant]
  6. FERROUS SULFATE [Concomitant]
  7. CALCIUM [Concomitant]
  8. VITAMIN B COMPLEX [Concomitant]
  9. VITAMIN C [Concomitant]
  10. MVI [Concomitant]
  11. GLUCOSAMINE/CHONDROITIN [Concomitant]
  12. FLAXSEED OIL [Concomitant]
  13. FISH OIL [Concomitant]
  14. DEXAMETHASONE [Concomitant]
  15. ASA [Concomitant]
  16. ACYCLOVIR [Concomitant]
  17. LISINOPRIL [Concomitant]
  18. METOPROLOL [Concomitant]
  19. METFORMIN [Concomitant]
  20. GLIPIZIDE [Concomitant]
  21. SIMVASTATIN [Concomitant]
  22. FAMOTIDINE [Concomitant]

REACTIONS (1)
  - Pancytopenia [None]
